FAERS Safety Report 15848968 (Version 3)
Quarter: 2019Q1

REPORT INFORMATION
  Report Type: Spontaneous
  Country: AT (occurrence: AT)
  Receive Date: 20190121
  Receipt Date: 20190226
  Transmission Date: 20190417
  Serious: Yes (Other)
  Sender: FDA-Public Use
  Company Number: AT-PFIZER INC-2019021409

PATIENT
  Age: 61 Year
  Sex: Female

DRUGS (8)
  1. SAROTEN [Concomitant]
     Active Substance: AMITRIPTYLINE
     Dosage: 10 MG, 1X/DAY (IN THE EVENING)
  2. SUTENT [Suspect]
     Active Substance: SUNITINIB MALATE
     Dosage: 75 MG, CYCLIC 2/1 SCHEME
     Dates: start: 20190112
  3. SIMVASTATIN. [Concomitant]
     Active Substance: SIMVASTATIN
     Dosage: 20 MG, 1X/DAY (IN THE EVENING)
  4. OLEOVIT D3 [Concomitant]
     Active Substance: CHOLECALCIFEROL
     Dosage: 40 GTT, WEEKLY
  5. SUTENT [Suspect]
     Active Substance: SUNITINIB MALATE
     Indication: METASTATIC RENAL CELL CARCINOMA
     Dosage: 75 MG, CYCLIC 2/1 SCHEME
     Dates: start: 201803, end: 20181217
  6. EXFORGE [Concomitant]
     Active Substance: AMLODIPINE BESYLATE\VALSARTAN
     Dosage: 10/160 MG 2X1/2
  7. XICLAV [AMOXICILLIN TRIHYDRATE;CLAVULANATE POTASSIUM] [Concomitant]
     Dosage: 1 G, 2X/DAY
     Dates: start: 20181126
  8. NOVALGIN (METAMIZOLE SODIUM) [Concomitant]
     Active Substance: METAMIZOLE SODIUM
     Indication: PAIN
     Dosage: UNK UNK, AS NEEDED UP TO 4X1

REACTIONS (2)
  - Urinoma [Recovered/Resolved]
  - Fistula [Recovering/Resolving]

NARRATIVE: CASE EVENT DATE: 201811
